FAERS Safety Report 7128089-X (Version None)
Quarter: 2010Q4

REPORT INFORMATION
  Report Type: 
  Country: None (occurrence: None)
  Receive Date: 20101130
  Receipt Date: 20101118
  Transmission Date: 20110411
  Serious: Yes (Hospitalization, Other)
  Sender: FDA-Public Use
  Company Number: US-AMGEN-USASP2010002298

PATIENT

DRUGS (6)
  1. NPLATE [Suspect]
     Indication: IDIOPATHIC THROMBOCYTOPENIC PURPURA
     Dosage: UNK
     Dates: start: 20101026, end: 20101026
  2. NPLATE [Suspect]
     Dates: start: 20101026
  3. ATENOLOL [Concomitant]
     Indication: PRODUCT USED FOR UNKNOWN INDICATION
  4. PRILOSEC [Concomitant]
     Indication: PRODUCT USED FOR UNKNOWN INDICATION
  5. TEMAZEPAM [Concomitant]
     Indication: PRODUCT USED FOR UNKNOWN INDICATION
  6. DIABETES MEDICATION [Concomitant]

REACTIONS (14)
  - ARTHRALGIA [None]
  - ASTHENIA [None]
  - INFLUENZA [None]
  - MYOCARDIAL INFARCTION [None]
  - PAIN [None]
  - PULMONARY THROMBOSIS [None]
  - PYREXIA [None]
  - STICKY PLATELET SYNDROME [None]
  - THROMBOCYTOSIS [None]
  - THROMBOSIS [None]
  - THROMBOSIS IN DEVICE [None]
  - TREMOR [None]
  - VIRAL INFECTION [None]
  - WALKING AID USER [None]
